FAERS Safety Report 5637984-X (Version None)
Quarter: 2008Q1

REPORT INFORMATION
  Report Type: 
  Country: None (occurrence: None)
  Receive Date: 20080226
  Receipt Date: 20080220
  Transmission Date: 20080703
  Serious: Yes (Hospitalization, Other)
  Sender: FDA-Public Use
  Company Number: HQWYE377325MAY07

PATIENT
  Age: 25 Year
  Sex: Female
  Weight: 66 kg

DRUGS (2)
  1. PANTOZOL [Suspect]
     Route: 048
     Dates: start: 20060505, end: 20060519
  2. MELODEN [Interacting]
     Indication: CONTRACEPTION
     Route: 048

REACTIONS (2)
  - DRUG INTERACTION [None]
  - POLYMENORRHOEA [None]
